FAERS Safety Report 6291320-7 (Version None)
Quarter: 2009Q3

REPORT INFORMATION
  Report Type: 
  Country: None (occurrence: None)
  Receive Date: 20090728
  Receipt Date: 20081113
  Transmission Date: 20100115
  Serious: Yes (Other)
  Sender: FDA-Public Use
  Company Number: 269615

PATIENT
  Age: 56 Year
  Sex: Male

DRUGS (3)
  1. TNKASE [Suspect]
     Indication: ACUTE MYOCARDIAL INFARCTION
     Dosage: 45 MG, SINGLE, INTRAVENOUS
     Route: 042
     Dates: start: 20080920
  2. HEPARIN [Concomitant]
  3. NITROGLYCERIN DRIP (NITROGLYCERIN) [Concomitant]

REACTIONS (1)
  - ARRHYTHMIA [None]
